FAERS Safety Report 14143564 (Version 3)
Quarter: 2018Q1

REPORT INFORMATION
  Report Type: Spontaneous
  Country: CN (occurrence: CN)
  Receive Date: 20171030
  Receipt Date: 20180103
  Transmission Date: 20180508
  Serious: Yes (Other)
  Sender: FDA-Public Use
  Company Number: CN-ROCHE-2015139

PATIENT
  Age: 59 Year
  Sex: Male

DRUGS (2)
  1. RIBAVIRIN. [Suspect]
     Active Substance: RIBAVIRIN
     Indication: HEPATITIS C
     Route: 048
     Dates: start: 201209
  2. INTERFERON ALFA-2B [Suspect]
     Active Substance: INTERFERON ALFA-2B
     Indication: HEPATITIS C
     Dosage: 3 X 10^6 UNITS
     Route: 058

REACTIONS (1)
  - Vogt-Koyanagi-Harada syndrome [Recovering/Resolving]

NARRATIVE: CASE EVENT DATE: 201301
